FAERS Safety Report 17888923 (Version 1)
Quarter: 2020Q2

REPORT INFORMATION
  Report Type: Spontaneous
  Country: US (occurrence: US)
  Receive Date: 20200612
  Receipt Date: 20200612
  Transmission Date: 20200714
  Serious: No
  Sender: FDA-Public Use
  Company Number: US-SA-2020SA147442

PATIENT

DRUGS (2)
  1. PRALUENT [Suspect]
     Active Substance: ALIROCUMAB
     Indication: TYPE V HYPERLIPIDAEMIA
     Dosage: 75 MG, QOW
     Route: 058
     Dates: start: 20200513
  2. PROPANE-1,2-DIOL [Concomitant]
     Dosage: UNK

REACTIONS (1)
  - Blood pressure fluctuation [Unknown]

NARRATIVE: CASE EVENT DATE: 2020
